FAERS Safety Report 9589366 (Version 2)
Quarter: 2013Q4

REPORT INFORMATION
  Report Type: Spontaneous
  Country: US (occurrence: US)
  Receive Date: 20131003
  Receipt Date: 20131003
  Transmission Date: 20140711
  Serious: No
  Sender: FDA-Public Use
  Company Number: US-AMGEN-USASP2012064617

PATIENT
  Sex: Female
  Weight: 99.77 kg

DRUGS (5)
  1. ENBREL [Suspect]
     Indication: PRODUCT USED FOR UNKNOWN INDICATION
     Dosage: 50 MG, QWK
     Route: 058
  2. NABUMETONE [Concomitant]
     Dosage: 750 MG, UNK
  3. CARISOPRODOL [Concomitant]
     Dosage: 350 MG, UNK
  4. IBUPROFEN [Concomitant]
     Dosage: 200 MG, UNK
  5. METHOTREXATE [Concomitant]
     Dosage: 20 MG, UNK

REACTIONS (4)
  - Injection site erythema [Not Recovered/Not Resolved]
  - Injection site swelling [Unknown]
  - Injection site pruritus [Not Recovered/Not Resolved]
  - Injection site warmth [Not Recovered/Not Resolved]
